FAERS Safety Report 5792384-7 (Version None)
Quarter: 2008Q2

REPORT INFORMATION
  Report Type: 
  Country: None (occurrence: None)
  Receive Date: 20080626
  Receipt Date: 20080616
  Transmission Date: 20081010
  Serious: Yes (Hospitalization)
  Sender: FDA-Public Use
  Company Number: FR-ABBOTT-08P-056-0449662-00

PATIENT
  Sex: Male

DRUGS (7)
  1. ENANTONE LP 3.75 PREP INJ [Suspect]
     Indication: PROSTATE CANCER
     Route: 058
     Dates: start: 20080305, end: 20080305
  2. BICALUTAMIDE [Suspect]
     Indication: PROSTATE CANCER
     Route: 048
     Dates: start: 20080305, end: 20080305
  3. SUTENT [Concomitant]
     Indication: DRUG USE FOR UNKNOWN INDICATION
     Route: 048
     Dates: start: 20080222, end: 20080312
  4. SUTENT [Concomitant]
     Route: 048
     Dates: start: 20080403, end: 20080416
  5. SUTENT [Concomitant]
     Dates: start: 20080417
  6. AMOXICILLIN [Concomitant]
     Indication: PYREXIA
     Dates: start: 20080301, end: 20080301
  7. AMOXICILLIN [Concomitant]
     Indication: PHARYNGITIS

REACTIONS (4)
  - CHOLESTASIS [None]
  - PANCREATIC ENZYMES INCREASED [None]
  - PHARYNGITIS [None]
  - PYREXIA [None]
